FAERS Safety Report 4664813-3 (Version None)
Quarter: 2005Q2

REPORT INFORMATION
  Report Type: 
  Country: None (occurrence: None)
  Receive Date: 20050517
  Receipt Date: 20050517
  Transmission Date: 20051028
  Serious: No
  Sender: FDA-Public Use
  Company Number: None

PATIENT

DRUGS (1)
  1. FLUVASTATIN [Suspect]
     Indication: HYPERLIPIDAEMIA
     Dosage: 40 MG PO DAILY
     Route: 048
     Dates: start: 20050215, end: 20050222

REACTIONS (3)
  - ABDOMINAL PAIN [None]
  - NAUSEA [None]
  - VOMITING [None]
